FAERS Safety Report 18509137 (Version 2)
Quarter: 2025Q3

REPORT INFORMATION
  Report Type: Spontaneous
  Country: EU (occurrence: EU)
  Receive Date: 20201117
  Receipt Date: 20250912
  Transmission Date: 20251020
  Serious: Yes (Hospitalization, Other)
  Sender: AUROBINDO
  Company Number: EU-MYLANLABS-2020M1090723

PATIENT
  Age: 91 Year
  Sex: Male

DRUGS (1)
  1. VALGANCICLOVIR [Suspect]
     Active Substance: VALGANCICLOVIR
     Indication: Product used for unknown indication
     Route: 065

REACTIONS (5)
  - Pneumonia cytomegaloviral [Unknown]
  - Pyrexia [Unknown]
  - Asthenia [Unknown]
  - Dyspnoea [Unknown]
  - Cough [Unknown]
